FAERS Safety Report 8445077-1 (Version None)
Quarter: 2012Q2

REPORT INFORMATION
  Report Type: 
  Country: None (occurrence: None)
  Receive Date: 20120618
  Receipt Date: 20120611
  Transmission Date: 20120825
  Serious: Yes (Life-Threatening, Hospitalization)
  Sender: FDA-Public Use
  Company Number: TR-ACTELION-A-CH2012-67124

PATIENT
  Sex: Female
  Weight: 96 kg

DRUGS (5)
  1. TRACLEER [Suspect]
     Indication: PULMONARY HYPERTENSION
     Dosage: 62.5 MG, BID
     Route: 048
     Dates: start: 20120330, end: 20120515
  2. TRACLEER [Suspect]
     Dosage: 125 MG, BID
     Route: 048
     Dates: end: 20120530
  3. DESAL [Concomitant]
  4. CORASPIN [Concomitant]
  5. COMBIVENT [Concomitant]

REACTIONS (2)
  - PULMONARY OEDEMA [None]
  - BRONCHOSPASM [None]
